FAERS Safety Report 4456915-1 (Version None)
Quarter: 2004Q3

REPORT INFORMATION
  Report Type: 
  Country: None (occurrence: None)
  Receive Date: 20040923
  Receipt Date: 20040914
  Transmission Date: 20050211
  Serious: Yes (Hospitalization)
  Sender: FDA-Public Use
  Company Number: US-ROCHE-380672

PATIENT
  Age: 64 Year
  Sex: Male

DRUGS (5)
  1. ROFERON-A [Suspect]
     Indication: PROSTATE CANCER METASTATIC
     Route: 065
     Dates: start: 20020404, end: 20020830
  2. 13-CIS-RETINOIC ACID [Suspect]
     Indication: PROSTATE CANCER METASTATIC
     Route: 065
     Dates: start: 20020404, end: 20020830
  3. EPOGEN [Concomitant]
  4. TYLENOL [Concomitant]
  5. METILPREDNISOLONE [Concomitant]

REACTIONS (1)
  - DEEP VEIN THROMBOSIS [None]
